FAERS Safety Report 6652792-9 (Version None)
Quarter: 2010Q1

REPORT INFORMATION
  Report Type: 
  Country: None (occurrence: None)
  Receive Date: 20100326
  Receipt Date: 20100318
  Transmission Date: 20100710
  Serious: Yes (Hospitalization)
  Sender: FDA-Public Use
  Company Number: ES-ASTRAZENECA-2010SE12491

PATIENT
  Age: 77 Year
  Sex: Male

DRUGS (2)
  1. SEROQUEL XR [Suspect]
     Indication: COGNITIVE DISORDER
     Route: 048
     Dates: start: 20090101, end: 20090707
  2. FOSFOMICINE [Suspect]
     Indication: URINARY TRACT INFECTION
     Route: 065
     Dates: start: 20090704, end: 20090704

REACTIONS (2)
  - CYTOLYTIC HEPATITIS [None]
  - HYPERBILIRUBINAEMIA [None]
